FAERS Safety Report 17210481 (Version 2)
Quarter: 2020Q1

REPORT INFORMATION
  Report Type: Spontaneous
  Country: CN (occurrence: CN)
  Receive Date: 20191227
  Receipt Date: 20200108
  Transmission Date: 20200409
  Serious: Yes (Other)
  Sender: FDA-Public Use
  Company Number: CN-GILEAD-2019-0444310

PATIENT
  Sex: Male

DRUGS (3)
  1. PEGASYS [Concomitant]
     Active Substance: PEGINTERFERON ALFA-2A
  2. VEMLIDY [Suspect]
     Active Substance: TENOFOVIR ALAFENAMIDE FUMARATE
     Indication: HEPATITIS B
     Dosage: UNK UNK, QD
     Route: 048
     Dates: end: 201912
  3. BICYCLOL [Concomitant]
     Active Substance: BICYCLOL

REACTIONS (1)
  - Hepatitis B surface antigen [Not Recovered/Not Resolved]

NARRATIVE: CASE EVENT DATE: 201912
